FAERS Safety Report 6049020-4 (Version None)
Quarter: 2009Q1

REPORT INFORMATION
  Report Type: 
  Country: None (occurrence: None)
  Receive Date: 20090123
  Receipt Date: 20090119
  Transmission Date: 20090719
  Serious: Yes (Hospitalization)
  Sender: FDA-Public Use
  Company Number: US-ELI_LILLY_AND_COMPANY-US200804001296

PATIENT
  Sex: Female
  Weight: 79.365 kg

DRUGS (14)
  1. BYETTA [Suspect]
     Indication: TYPE 2 DIABETES MELLITUS
     Dosage: 5 UG, 2/D
     Route: 058
     Dates: start: 20050101
  2. BYETTA [Suspect]
     Dosage: 5 UG, 2/D
     Route: 058
     Dates: start: 20030101, end: 20081201
  3. BYETTA [Suspect]
     Dosage: 5 UG, DAILY (1/D)
     Route: 058
  4. ACTOS [Concomitant]
     Indication: TYPE 2 DIABETES MELLITUS
     Dosage: 30 MG, DAILY (1/D)
  5. BONIVA [Concomitant]
     Indication: RESORPTION BONE INCREASED
     Dosage: 150 MG, UNK
  6. PRAVASTATIN [Concomitant]
     Indication: BLOOD CHOLESTEROL
     Dosage: 40 MG, UNKNOWN
     Route: 048
  7. METOLAZONE [Concomitant]
     Dosage: 5 MG, UNK
  8. NEURONTIN [Concomitant]
     Indication: NEUROPATHY PERIPHERAL
     Dosage: 600 MG, DAILY (1/D)
  9. BUPROPION HCL [Concomitant]
     Indication: DEPRESSION
     Dosage: 20 MG, DAILY (1/D)
  10. ATENOLOL [Concomitant]
     Indication: MYOCARDIAL INFARCTION
     Dosage: 25 MG, DAILY (1/D)
  11. K-DUR [Concomitant]
     Dosage: 20 MG, DAILY (1/D)
  12. VITAMINS NOS [Concomitant]
     Dosage: UNK, DAILY (1/D)
  13. RANITIDINE [Concomitant]
     Indication: ABDOMINAL DISCOMFORT
  14. INSULIN [Concomitant]
     Indication: TYPE 2 DIABETES MELLITUS

REACTIONS (14)
  - BLOOD ELECTROLYTES DECREASED [None]
  - BLOOD GLUCOSE DECREASED [None]
  - BLOOD GLUCOSE INCREASED [None]
  - CONFUSIONAL STATE [None]
  - DECREASED APPETITE [None]
  - DEHYDRATION [None]
  - DEPRESSION [None]
  - HYPERHIDROSIS [None]
  - MEMORY IMPAIRMENT [None]
  - MENTAL DISORDER [None]
  - NAUSEA [None]
  - PSYCHOMOTOR HYPERACTIVITY [None]
  - URINARY TRACT INFECTION [None]
  - WEIGHT DECREASED [None]
